FAERS Safety Report 9885780 (Version 1)
Quarter: 2014Q1

REPORT INFORMATION
  Report Type: Spontaneous
  Country: PE (occurrence: PE)
  Receive Date: 20140210
  Receipt Date: 20140210
  Transmission Date: 20141002
  Serious: Yes (Other)
  Sender: FDA-Public Use
  Company Number: PE-BRISTOL-MYERS SQUIBB COMPANY-20172649

PATIENT
  Age: 39 Year
  Sex: 0

DRUGS (1)
  1. SPRYCEL [Suspect]
     Dates: start: 20140128

REACTIONS (2)
  - Carditis [Unknown]
  - Pneumonitis [Unknown]
